FAERS Safety Report 8340561-3 (Version None)
Quarter: 2012Q2

REPORT INFORMATION
  Report Type: 
  Country: None (occurrence: None)
  Receive Date: 20120507
  Receipt Date: 20120427
  Transmission Date: 20120825
  Serious: Yes (Hospitalization, Other)
  Sender: FDA-Public Use
  Company Number: NL-MEDIMMUNE-MEDI-0013861

PATIENT
  Sex: Male
  Weight: 4.93 kg

DRUGS (4)
  1. SYNAGIS [Suspect]
     Route: 030
     Dates: start: 20111010, end: 20111010
  2. FUROSEMIDE [Concomitant]
  3. METHADON HCL TAB [Concomitant]
     Dates: start: 20110101
  4. SPIRONOLACTONE [Concomitant]

REACTIONS (2)
  - GENERAL PHYSICAL HEALTH DETERIORATION [None]
  - CONGENITAL CARDIOVASCULAR ANOMALY [None]
